FAERS Safety Report 7113911-3 (Version None)
Quarter: 2010Q4

REPORT INFORMATION
  Report Type: 
  Country: None (occurrence: None)
  Receive Date: 20101119
  Receipt Date: 20101108
  Transmission Date: 20110411
  Serious: Yes (Other)
  Sender: FDA-Public Use
  Company Number: JP-SANOFI-AVENTIS-2010SA068747

PATIENT
  Age: 79 Year
  Sex: Female

DRUGS (14)
  1. RIFADIN [Suspect]
     Route: 048
     Dates: start: 20100914
  2. ISCOTIN [Suspect]
     Route: 048
     Dates: start: 20100914
  3. PYRAMIDE [Suspect]
     Route: 048
     Dates: start: 20100914
  4. EBUTOL [Suspect]
     Route: 048
     Dates: start: 20100914
  5. LOXONIN [Concomitant]
     Indication: RHEUMATOID ARTHRITIS
     Route: 048
  6. OLMETEC [Concomitant]
     Indication: HYPERTENSION
     Route: 048
  7. PYDOXAL [Concomitant]
     Indication: PROPHYLAXIS
     Route: 048
     Dates: start: 20100914
  8. MYSLEE [Concomitant]
     Indication: INSOMNIA
     Route: 048
     Dates: start: 20100908
  9. PREDNISOLONE [Concomitant]
     Indication: RHEUMATOID ARTHRITIS
     Route: 048
     Dates: start: 20060624
  10. BASEN [Concomitant]
     Indication: DIABETES MELLITUS
     Route: 048
     Dates: start: 20061028
  11. AMARYL [Concomitant]
     Indication: DIABETES MELLITUS
     Route: 048
     Dates: start: 20070511
  12. TAKEPRON [Concomitant]
     Indication: PROPHYLAXIS
     Route: 048
     Dates: start: 20090213
  13. PROGRAF [Concomitant]
     Indication: RHEUMATOID ARTHRITIS
     Route: 048
     Dates: start: 20090925
  14. COAL TAR SOLUTION [Concomitant]
     Indication: PROPHYLAXIS
     Route: 048
     Dates: start: 20090925

REACTIONS (2)
  - HYPOGLYCAEMIA [None]
  - UNRESPONSIVE TO STIMULI [None]
